FAERS Safety Report 20946218 (Version 6)
Quarter: 2022Q4

REPORT INFORMATION
  Report Type: Report from Study
  Country: US (occurrence: US)
  Receive Date: 20220610
  Receipt Date: 20221125
  Transmission Date: 20230112
  Serious: Yes (Other)
  Sender: FDA-Public Use
  Company Number: US-NOVARTISTESTPH-NVSC2022US133821

PATIENT
  Sex: Male

DRUGS (2)
  1. ENTRESTO [Suspect]
     Active Substance: SACUBITRIL\VALSARTAN
     Indication: Product used for unknown indication
     Dosage: UNK (HIGHEST DOSE)
     Route: 065
  2. ENTRESTO [Suspect]
     Active Substance: SACUBITRIL\VALSARTAN
     Dosage: UNK (LOW DOSE)
     Route: 065

REACTIONS (6)
  - Myocardial infarction [Unknown]
  - Blood cholesterol decreased [Recovering/Resolving]
  - Upper respiratory tract infection [Unknown]
  - Cough [Unknown]
  - Nasal congestion [Unknown]
  - Hypotension [Unknown]
